FAERS Safety Report 12466125 (Version 1)
Quarter: 2016Q2

REPORT INFORMATION
  Report Type: Spontaneous
  Country: CH (occurrence: CH)
  Receive Date: 20160614
  Receipt Date: 20160614
  Transmission Date: 20160815
  Serious: Yes (Other)
  Sender: FDA-Public Use
  Company Number: CH-009507513-1606CHE006617

PATIENT
  Age: 44 Year
  Sex: Male

DRUGS (1)
  1. NANDROLONE DECANOATE. [Suspect]
     Active Substance: NANDROLONE DECANOATE

REACTIONS (2)
  - Cardiomyopathy [Not Recovered/Not Resolved]
  - Focal segmental glomerulosclerosis [Recovering/Resolving]
